FAERS Safety Report 15963548 (Version 1)
Quarter: 2019Q1

REPORT INFORMATION
  Report Type: Spontaneous
  Country: CA (occurrence: CA)
  Receive Date: 20190214
  Receipt Date: 20190214
  Transmission Date: 20190417
  Serious: Yes (Other)
  Sender: FDA-Public Use
  Company Number: CA-JNJFOC-20181003366

PATIENT
  Age: 81 Year
  Sex: Female
  Weight: 83.92 kg

DRUGS (3)
  1. NIZORAL [Suspect]
     Active Substance: KETOCONAZOLE
     Indication: DANDRUFF
     Dosage: DOSE: MORE THAN A TEA SPOON
     Route: 061
     Dates: start: 20171001, end: 20180929
  2. ANAFRANIL [Concomitant]
     Active Substance: CLOMIPRAMINE HYDROCHLORIDE
     Indication: ANEURYSM RUPTURED
     Route: 065
     Dates: start: 1982
  3. NIZORAL [Suspect]
     Active Substance: KETOCONAZOLE
     Indication: PRURITUS
     Dosage: DOSE: MORE THAN A TEA SPOON
     Route: 061
     Dates: start: 20171001, end: 20180929

REACTIONS (2)
  - Drug ineffective [Unknown]
  - Cerebrovascular accident [Unknown]

NARRATIVE: CASE EVENT DATE: 201810
